FAERS Safety Report 21190909 (Version 2)
Quarter: 2022Q3

REPORT INFORMATION
  Report Type: Spontaneous
  Country: US (occurrence: US)
  Receive Date: 20220809
  Receipt Date: 20220926
  Transmission Date: 20221027
  Serious: No
  Sender: FDA-Public Use
  Company Number: US-NOVARTISTESTPH-NVSC2022US179891

PATIENT
  Sex: Female

DRUGS (1)
  1. OMNITROPE [Suspect]
     Active Substance: SOMATROPIN
     Indication: Product used for unknown indication
     Dosage: UNK (10MG/1.5ML, 6 TIMES A WEEK)
     Route: 065
     Dates: start: 20220806

REACTIONS (2)
  - Product physical issue [Unknown]
  - Incorrect dose administered by device [Unknown]
